FAERS Safety Report 4783243-7 (Version None)
Quarter: 2005Q3

REPORT INFORMATION
  Report Type: 
  Country: None (occurrence: None)
  Receive Date: 20050914
  Receipt Date: 20050614
  Transmission Date: 20060218
  Serious: Yes (Death)
  Sender: FDA-Public Use
  Company Number: 163-20785-05060232

PATIENT
  Age: 69 Year
  Sex: Male

DRUGS (13)
  1. THALOMID [Suspect]
     Indication: PANCREATIC CARCINOMA
     Dosage: 500 MG, QHS, ORAL
     Route: 048
     Dates: start: 20050114, end: 20050601
  2. PREDNISONE [Concomitant]
  3. SINEMET [Concomitant]
  4. ALDACTONE [Concomitant]
  5. DILAUDID [Concomitant]
  6. PROCRIT [Concomitant]
  7. PLAVIX [Concomitant]
  8. COUMADIN [Concomitant]
  9. PANCREASE (PANCRELIPASE) [Concomitant]
  10. FLOMAX [Concomitant]
  11. LEXAPRO [Concomitant]
  12. MS CONTIN [Concomitant]
  13. PREVACID [Concomitant]

REACTIONS (2)
  - DEATH [None]
  - DISEASE PROGRESSION [None]
